FAERS Safety Report 11750099 (Version 1)
Quarter: 2015Q4

REPORT INFORMATION
  Report Type: Report from Study
  Country: US (occurrence: US)
  Receive Date: 20151118
  Receipt Date: 20151118
  Transmission Date: 20160304
  Serious: Yes (Hospitalization)
  Sender: FDA-Public Use
  Company Number: US-BIOGENIDEC-2015BI150906

PATIENT
  Age: 59 Year
  Sex: Male

DRUGS (12)
  1. IBUPROFEN. [Concomitant]
     Active Substance: IBUPROFEN
  2. VITAMIN D3 [Concomitant]
     Active Substance: CHOLECALCIFEROL
  3. HYDROCODONE [Concomitant]
     Active Substance: HYDROCODONE
  4. XANAX [Concomitant]
     Active Substance: ALPRAZOLAM
  5. PREDNISONE. [Concomitant]
     Active Substance: PREDNISONE
  6. VITAMIN D [Concomitant]
     Active Substance: CHOLECALCIFEROL
  7. VITAMIN A [Concomitant]
     Active Substance: VITAMIN A
  8. GABAPENTIN. [Concomitant]
     Active Substance: GABAPENTIN
  9. TECFIDERA [Suspect]
     Active Substance: DIMETHYL FUMARATE
     Indication: MULTIPLE SCLEROSIS
     Route: 048
     Dates: start: 20150226
  10. POTASSIUM [Concomitant]
     Active Substance: POTASSIUM
  11. B COMPLEX 50 [Concomitant]
  12. C COMPLEX [Concomitant]

REACTIONS (3)
  - Multiple sclerosis relapse [Recovered/Resolved]
  - Furuncle [Recovered/Resolved]
  - Staphylococcal skin infection [Recovered/Resolved]

NARRATIVE: CASE EVENT DATE: 20151001
